FAERS Safety Report 18353244 (Version 1)
Quarter: 2020Q4

REPORT INFORMATION
  Report Type: Spontaneous
  Country: US (occurrence: US)
  Receive Date: 20201006
  Receipt Date: 20201006
  Transmission Date: 20210114
  Serious: No
  Sender: FDA-Public Use
  Company Number: US-ALLERGAN-1936467US

PATIENT
  Age: 66 Year
  Sex: Female

DRUGS (4)
  1. SINEMET (GENERIC) [Concomitant]
     Dosage: 25/100MG CONTINUAL RELEASE, QID
     Route: 048
  2. LINZESS [Suspect]
     Active Substance: LINACLOTIDE
     Indication: CONSTIPATION
     Dosage: 145 ?G, QD
     Route: 048
     Dates: start: 20190827
  3. FOSAMAX [Concomitant]
     Active Substance: ALENDRONATE SODIUM
     Indication: OSTEOPOROSIS
     Dosage: UNK, Q WEEK
     Route: 065
  4. SINEMET (GENERIC) [Concomitant]
     Indication: PARKINSON^S DISEASE
     Dosage: 25 MG, QID (IMMEDIATE RELEASE)
     Route: 048

REACTIONS (6)
  - Inappropriate schedule of product administration [Unknown]
  - Abdominal distension [Not Recovered/Not Resolved]
  - Diarrhoea [Not Recovered/Not Resolved]
  - Off label use [Unknown]
  - Flatulence [Not Recovered/Not Resolved]
  - Constipation [Unknown]

NARRATIVE: CASE EVENT DATE: 201908
